FAERS Safety Report 4642880-0 (Version None)
Quarter: 2005Q2

REPORT INFORMATION
  Report Type: 
  Country: None (occurrence: None)
  Receive Date: 20050421
  Receipt Date: 20050411
  Transmission Date: 20051028
  Serious: Yes (Other)
  Sender: FDA-Public Use
  Company Number: 2005053776

PATIENT
  Age: 56 Year
  Sex: Male
  Weight: 82 kg

DRUGS (3)
  1. TAHOR (ATORVASTATIN) [Suspect]
     Indication: ILL-DEFINED DISORDER
     Dosage: 40 MG
  2. RAMIPRIL [Concomitant]
  3. ACETYLSALICYLIC ACID SRT [Concomitant]

REACTIONS (2)
  - BILE DUCT CANCER [None]
  - BILIARY DILATATION [None]
